FAERS Safety Report 7097073-7 (Version None)
Quarter: 2010Q4

REPORT INFORMATION
  Report Type: 
  Country: None (occurrence: None)
  Receive Date: 20101027
  Receipt Date: 20101018
  Transmission Date: 20110411
  Serious: Yes (Hospitalization)
  Sender: FDA-Public Use
  Company Number: AEUSA201000395

PATIENT
  Age: 60 Year
  Sex: Female
  Weight: 62.1428 kg

DRUGS (13)
  1. GAMUNEX [Suspect]
     Indication: STIFF-MAN SYNDROME
     Dosage: 125 MG;TOTAL;IV
     Route: 042
     Dates: start: 20100927, end: 20101001
  2. BACLOFEN [Concomitant]
  3. GABAPENTIN [Concomitant]
  4. VALIUM [Concomitant]
  5. LEVOTHYROXINE SODIUM [Concomitant]
  6. ZOLEDRONIC ACID [Concomitant]
  7. POTASSIUM CHLORIDE [Concomitant]
  8. CELEXA [Concomitant]
  9. ALBUTEROL SULFATE [Concomitant]
  10. CALCIUM WITH VITAMIN D /01233101/ [Concomitant]
  11. VITAMIN B-12 [Concomitant]
  12. ASCORBIC ACID [Concomitant]
  13. VITAMIN D3 [Concomitant]

REACTIONS (2)
  - BLOOD GLUCOSE INCREASED [None]
  - HEADACHE [None]
